FAERS Safety Report 18517013 (Version 1)
Quarter: 2020Q4

REPORT INFORMATION
  Report Type: Spontaneous
  Country: ES (occurrence: ES)
  Receive Date: 20201118
  Receipt Date: 20201118
  Transmission Date: 20210114
  Serious: Yes (Life-Threatening)
  Sender: FDA-Public Use
  Company Number: ES-JNJFOC-20201116952

PATIENT
  Age: 48 Year
  Sex: Male

DRUGS (8)
  1. PREGABALINA [Concomitant]
     Active Substance: PREGABALIN
     Indication: SCIATICA
     Route: 048
     Dates: start: 20190225
  2. LAMOTRIGINA [Concomitant]
     Active Substance: LAMOTRIGINE
     Indication: DEMENTIA ALZHEIMER^S TYPE
     Route: 048
     Dates: start: 20191112
  3. ZOPICLONA [Concomitant]
     Active Substance: ZOPICLONE
     Indication: ANXIETY
     Route: 048
     Dates: start: 20190225
  4. DONEPEZILO [Concomitant]
     Active Substance: DONEPEZIL
     Indication: DEMENTIA ALZHEIMER^S TYPE
     Route: 048
     Dates: start: 20200319
  5. CLONAZEPAM. [Concomitant]
     Active Substance: CLONAZEPAM
     Indication: ANXIETY
     Dosage: DOSIFICACI N IRREGULAR
     Route: 048
     Dates: start: 20181214
  6. TRAZODONA [Concomitant]
     Active Substance: TRAZODONE HYDROCHLORIDE
     Indication: ANXIETY
     Route: 048
     Dates: start: 20181110
  7. DUROGESIC MATRIX [Suspect]
     Active Substance: FENTANYL
     Indication: NEURALGIA
     Route: 062
     Dates: start: 20200919
  8. SULBUTIAMINA [Concomitant]
     Indication: ANXIETY
     Route: 048
     Dates: start: 20190315

REACTIONS (2)
  - Cardiac arrest [Recovering/Resolving]
  - Intentional overdose [Recovering/Resolving]

NARRATIVE: CASE EVENT DATE: 20201028
